FAERS Safety Report 8797946 (Version 1)
Quarter: 2012Q4

REPORT INFORMATION
  Report Type: Spontaneous
  Country: US (occurrence: None)
  Receive Date: 20120914
  Receipt Date: 20120914
  Transmission Date: 20130627
  Serious: Yes (Other)
  Sender: FDA-Public Use
  Company Number: CA12-0172

PATIENT
  Age: 74 Year
  Sex: Female

DRUGS (6)
  1. ENOXAPARIN SODIUM [Suspect]
     Indication: THROMBOSIS PROPHYLAXIS
     Dates: start: 20120809, end: 20120810
  2. ENOXAPARIN SODIUM [Suspect]
     Indication: LUMPECTOMY
     Dates: start: 20120809, end: 20120810
  3. ENOXAPARIN SODIUM [Suspect]
     Indication: PREOPERATIVE CARE
     Dates: start: 20120809, end: 20120810
  4. ENOXAPARIN SODIUM [Suspect]
     Indication: THROMBOSIS PROPHYLAXIS
     Dates: start: 20120811
  5. ENOXAPARIN SODIUM [Suspect]
     Indication: LUMPECTOMY
     Dates: start: 20120811
  6. ENOXAPARIN SODIUM [Suspect]
     Indication: PREOPERATIVE CARE
     Dates: start: 20120811

REACTIONS (2)
  - Gingival bleeding [None]
  - Product quality issue [None]
